FAERS Safety Report 5048966-3 (Version None)
Quarter: 2006Q3

REPORT INFORMATION
  Report Type: 
  Country: None (occurrence: None)
  Receive Date: 20060712
  Receipt Date: 20051011
  Transmission Date: 20061208
  Serious: No
  Sender: FDA-Public Use
  Company Number: US-GLAXOSMITHKLINE-A0577818A

PATIENT
  Age: 31 Year
  Sex: Female

DRUGS (9)
  1. IMITREX [Suspect]
     Indication: MIGRAINE
     Dosage: 100MG AS REQUIRED
     Route: 048
     Dates: start: 19920101, end: 20050903
  2. LITHIUM CARBONATE [Concomitant]
  3. DEPAKOTE [Concomitant]
  4. NEURONTIN [Concomitant]
  5. NEXIUM [Concomitant]
  6. INDERAL [Concomitant]
  7. PROZAC [Concomitant]
  8. PHENOBARBITAL [Concomitant]
  9. KLONOPIN [Concomitant]

REACTIONS (1)
  - TRANSIENT ISCHAEMIC ATTACK [None]
